FAERS Safety Report 9400013 (Version 1)
Quarter: 2013Q3

REPORT INFORMATION
  Report Type: Spontaneous
  Country: BR (occurrence: BR)
  Receive Date: 20130715
  Receipt Date: 20130715
  Transmission Date: 20140515
  Serious: Yes (Other)
  Sender: FDA-Public Use
  Company Number: BR-ASTRAZENECA-2013SE51009

PATIENT
  Age: 81 Year
  Sex: Female
  Weight: 55 kg

DRUGS (5)
  1. ATACAND [Suspect]
     Indication: HYPERTENSION
     Route: 048
     Dates: start: 2011, end: 20130609
  2. ATACAND COMB [Suspect]
     Indication: HYPERTENSION
     Dosage: 16/2.5 MG, DAILY
     Route: 048
     Dates: start: 20130610
  3. ATACAND COMB [Suspect]
     Indication: HYPERTENSION
     Dosage: ONE DAY THE PATIENT USED ONE TABLET OF CANDESARTAN CILEXETIL AND THE OTHER DAY ONE TABLET OF FELOD
     Route: 048
     Dates: start: 20130610
  4. ATENOLOL [Suspect]
     Indication: HYPERTENSION
     Route: 048
     Dates: start: 20130610
  5. HIGROTON [Suspect]
     Indication: HYPERTENSION
     Route: 065

REACTIONS (3)
  - Hypertension [Not Recovered/Not Resolved]
  - Drug prescribing error [Unknown]
  - Drug ineffective [Unknown]
